FAERS Safety Report 10072056 (Version 1)
Quarter: 2014Q2

REPORT INFORMATION
  Report Type: Spontaneous
  Country: US (occurrence: US)
  Receive Date: 20140411
  Receipt Date: 20140411
  Transmission Date: 20141212
  Serious: Yes (Death, Hospitalization, Other)
  Sender: FDA-Public Use
  Company Number: US-UCBSA-117964

PATIENT
  Age: 57 Year
  Sex: Male

DRUGS (2)
  1. MOEXIPRIL [Suspect]
     Dosage: UNKNOWN DOSE
  2. HYDROCHLOROTHIAZIDE [Suspect]
     Dosage: UNKNOWN DOSE

REACTIONS (5)
  - Neutropenic colitis [Fatal]
  - Septic shock [Fatal]
  - Multi-organ failure [Fatal]
  - Blood creatinine increased [Unknown]
  - Lactic acidosis [Unknown]
